FAERS Safety Report 4709462-3 (Version None)
Quarter: 2005Q3

REPORT INFORMATION
  Report Type: 
  Country: None (occurrence: None)
  Receive Date: 20050708
  Receipt Date: 20050704
  Transmission Date: 20060218
  Serious: Yes (Life-Threatening)
  Sender: FDA-Public Use
  Company Number: FR-GLAXOSMITHKLINE-B0386900A

PATIENT
  Age: 64 Year
  Sex: Male

DRUGS (6)
  1. AUGMENTIN '125' [Suspect]
     Dosage: 1G SINGLE DOSE
     Route: 042
     Dates: start: 20041123, end: 20041123
  2. CLAMOXYL [Suspect]
     Dosage: 1G SINGLE DOSE
     Route: 042
     Dates: start: 20041123, end: 20041123
  3. TRACRIUM [Concomitant]
     Route: 042
     Dates: start: 20041123, end: 20041123
  4. DIPRIVAN [Concomitant]
     Route: 042
     Dates: start: 20041123, end: 20041123
  5. SUFENTA [Concomitant]
     Route: 042
     Dates: start: 20041123, end: 20041123
  6. SEVORANE [Concomitant]
     Route: 042
     Dates: start: 20041123, end: 20041123

REACTIONS (3)
  - ANAPHYLACTIC SHOCK [None]
  - CARDIAC ARREST [None]
  - SHOCK [None]
